FAERS Safety Report 23124465 (Version 1)
Quarter: 2023Q4

REPORT INFORMATION
  Report Type: Report from Study
  Country: CN (occurrence: CN)
  Receive Date: 20231030
  Receipt Date: 20231030
  Transmission Date: 20240110
  Serious: Yes (Hospitalization, Other)
  Sender: FDA-Public Use
  Company Number: CN-Eisai-EC-2023-151215

PATIENT
  Age: 55 Year
  Sex: Female

DRUGS (5)
  1. LENVATINIB [Suspect]
     Active Substance: LENVATINIB
     Indication: Hepatocellular carcinoma
     Route: 048
     Dates: start: 20230823, end: 20230828
  2. LENVATINIB [Suspect]
     Active Substance: LENVATINIB
     Route: 048
     Dates: start: 20230904, end: 20230919
  3. DURVALUMAB [Suspect]
     Active Substance: DURVALUMAB
     Indication: Hepatocellular carcinoma
     Dosage: UNKNOWN DOSE AND FREQUENCY
     Dates: start: 20230823, end: 20230823
  4. TREMELIMUMAB [Suspect]
     Active Substance: TREMELIMUMAB
     Indication: Hepatocellular carcinoma
     Dosage: UNKNOWN DOSE AND FREQUENCY
     Route: 042
     Dates: start: 20230823, end: 20230823
  5. 1. ENTECAVIR [Concomitant]
     Indication: Hepatitis B
     Route: 048

REACTIONS (1)
  - Suspected drug-induced liver injury [Not Recovered/Not Resolved]

NARRATIVE: CASE EVENT DATE: 20230920
